FAERS Safety Report 16410669 (Version 1)
Quarter: 2019Q2

REPORT INFORMATION
  Report Type: Report from Study
  Country: None (occurrence: US)
  Receive Date: 20190610
  Receipt Date: 20190610
  Transmission Date: 20190711
  Serious: Yes (Other)
  Sender: FDA-Public Use
  Company Number: US-ABBVIE-19K-163-2809762-00

PATIENT
  Age: 63 Year
  Sex: Male

DRUGS (1)
  1. HUMIRA [Suspect]
     Active Substance: ADALIMUMAB
     Indication: COLITIS ULCERATIVE
     Dosage: CITRATE FREE
     Route: 058
     Dates: start: 20190313

REACTIONS (4)
  - Wound [Recovering/Resolving]
  - Suture rupture [Recovering/Resolving]
  - Impaired healing [Recovering/Resolving]
  - Squamous cell carcinoma of skin [Recovering/Resolving]

NARRATIVE: CASE EVENT DATE: 20190520
